FAERS Safety Report 8127921 (Version 5)
Quarter: 2015Q3

REPORT INFORMATION
  Report Type: Report from Study
  Country: US (occurrence: US)
  Receive Date: 20110909
  Receipt Date: 20150921
  Transmission Date: 20151125
  Serious: Yes (Hospitalization)
  Sender: FDA-Public Use
  Company Number: US-BIOGENIDEC-2011BI033599

PATIENT
  Age: 58 Year
  Sex: Male

DRUGS (3)
  1. TYSABRI [Suspect]
     Active Substance: NATALIZUMAB
     Indication: MULTIPLE SCLEROSIS
     Route: 042
     Dates: start: 20130717, end: 20150415
  2. TYSABRI [Suspect]
     Active Substance: NATALIZUMAB
     Indication: MULTIPLE SCLEROSIS
     Route: 042
     Dates: start: 20071003, end: 20100929
  3. TYSABRI [Suspect]
     Active Substance: NATALIZUMAB
     Indication: MULTIPLE SCLEROSIS
     Route: 042
     Dates: start: 20110615, end: 20110713

REACTIONS (13)
  - Osteomyelitis [Recovered/Resolved]
  - Fatigue [Not Recovered/Not Resolved]
  - Drug delivery device implantation [Not Recovered/Not Resolved]
  - Muscle twitching [Unknown]
  - Multiple sclerosis [Not Recovered/Not Resolved]
  - Brain midline shift [Recovered/Resolved]
  - Muscle atrophy [Recovered/Resolved]
  - Balance disorder [Not Recovered/Not Resolved]
  - Cerebrovascular accident [Not Recovered/Not Resolved]
  - Gait disturbance [Not Recovered/Not Resolved]
  - Musculoskeletal stiffness [Unknown]
  - Cerebral haemorrhage [Recovered/Resolved]
  - Loss of control of legs [Unknown]

NARRATIVE: CASE EVENT DATE: 20071003
